FAERS Safety Report 5796253-8 (Version None)
Quarter: 2008Q2

REPORT INFORMATION
  Report Type: 
  Country: None (occurrence: None)
  Receive Date: 20080618
  Receipt Date: 20070820
  Transmission Date: 20081010
  Serious: Yes (Other)
  Sender: FDA-Public Use
  Company Number: 200715488US

PATIENT
  Age: 62 Year
  Sex: Male
  Weight: 89.54 kg

DRUGS (12)
  1. LANTUS [Suspect]
     Indication: TYPE 2 DIABETES MELLITUS
     Dosage: 10 U HS INJ
     Dates: start: 20061106
  2. LANTUS [Suspect]
     Indication: TYPE 2 DIABETES MELLITUS
     Dosage: 24 U HS INJ
     Dates: start: 20070101, end: 20070701
  3. METFORMIN HCL [Concomitant]
  4. GLYBURIDE [Concomitant]
  5. RED YEAST RICE [Concomitant]
  6. CINNAMON [Concomitant]
  7. ASPIRIN [Concomitant]
  8. PREVACID [Concomitant]
  9. TAMSULOSIN HCL [Concomitant]
  10. JUICE PLUS VITAMINS [Concomitant]
  11. LANTUS [Suspect]
     Indication: TYPE 2 DIABETES MELLITUS
     Dosage: 18 U INJ
     Dates: start: 20070731
  12. LANTUS [Suspect]
     Indication: TYPE 2 DIABETES MELLITUS
     Dosage: 18-24 U QD INJ
     Dates: start: 20070101

REACTIONS (3)
  - BALANCE DISORDER [None]
  - BLOOD GLUCOSE INCREASED [None]
  - HYPOGLYCAEMIA [None]
